FAERS Safety Report 25080548 (Version 3)
Quarter: 2025Q3

REPORT INFORMATION
  Report Type: Spontaneous
  Country: US (occurrence: US)
  Receive Date: 20250315
  Receipt Date: 20250804
  Transmission Date: 20251020
  Serious: No
  Sender: SANOFI AVENTIS
  Company Number: US-SA-2025SA074235

PATIENT
  Sex: Male
  Weight: 64.86 kg

DRUGS (29)
  1. DUPIXENT [Suspect]
     Active Substance: DUPILUMAB
     Indication: Eosinophilic oesophagitis
     Dosage: 300 MG, QW
     Route: 058
     Dates: start: 20230414
  2. SEMAGLUTIDE [Suspect]
     Active Substance: SEMAGLUTIDE
  3. ALLEGRA ALLERGY [Concomitant]
     Active Substance: FEXOFENADINE HYDROCHLORIDE
  4. AZITHROMYCIN [Concomitant]
     Active Substance: AZITHROMYCIN
  5. BENZONATATE [Concomitant]
     Active Substance: BENZONATATE
  6. BENZONATATE [Concomitant]
     Active Substance: BENZONATATE
  7. BUDESONIDE [Concomitant]
     Active Substance: BUDESONIDE
  8. BUPROPION HYDROCHLORIDE [Concomitant]
     Active Substance: BUPROPION HYDROCHLORIDE
  9. DESCOVY [Concomitant]
     Active Substance: EMTRICITABINE\TENOFOVIR ALAFENAMIDE FUMARATE
  10. DESVENLAFAXINE [Concomitant]
     Active Substance: DESVENLAFAXINE
  11. DICYCLOMINE [Concomitant]
     Active Substance: DICYCLOMINE HYDROCHLORIDE
  12. EPINEPHRINE [Concomitant]
     Active Substance: EPINEPHRINE
  13. FAMOTIDINE [Concomitant]
     Active Substance: FAMOTIDINE
  14. FERROUS SULFATE [Concomitant]
     Active Substance: FERROUS SULFATE
  15. HYDROCODONE BITARTRATE [Concomitant]
     Active Substance: HYDROCODONE BITARTRATE
  16. IPRATROPIUM [Concomitant]
     Active Substance: IPRATROPIUM
  17. LORAZEPAM [Concomitant]
     Active Substance: LORAZEPAM
  18. MELOXICAM [Concomitant]
     Active Substance: MELOXICAM
  19. METHYLPREDNISOLONE [Concomitant]
     Active Substance: METHYLPREDNISOLONE
  20. VITAMINS [Concomitant]
     Active Substance: VITAMINS
     Dosage: UNK UNK, QD
  21. NYSTATIN [Concomitant]
     Active Substance: NYSTATIN
  22. ONDANSETRON [Concomitant]
     Active Substance: ONDANSETRON
  23. PANTOPRAZOLE [Concomitant]
     Active Substance: PANTOPRAZOLE
  24. PHENAZOPYRIDINE [Concomitant]
     Active Substance: PHENAZOPYRIDINE
  25. PREDNISONE [Concomitant]
     Active Substance: PREDNISONE
  26. SUCRALFATE [Concomitant]
     Active Substance: SUCRALFATE
  27. TESTOPEL [Concomitant]
     Active Substance: TESTOSTERONE
  28. TOPIRAMATE [Concomitant]
     Active Substance: TOPIRAMATE
  29. DESVENLAFAXINE [Concomitant]
     Active Substance: DESVENLAFAXINE

REACTIONS (6)
  - Weight decreased [Not Recovered/Not Resolved]
  - Decreased appetite [Not Recovered/Not Resolved]
  - Impaired quality of life [Unknown]
  - Feeling abnormal [Unknown]
  - Dysphagia [Unknown]
  - Drug ineffective [Unknown]
